FAERS Safety Report 4590314-7 (Version None)
Quarter: 2005Q1

REPORT INFORMATION
  Report Type: 
  Country: None (occurrence: None)
  Receive Date: 20050224
  Receipt Date: 20050214
  Transmission Date: 20050727
  Serious: Yes (Disabling)
  Sender: FDA-Public Use
  Company Number: DEWYE308228DEC04

PATIENT
  Sex: Female
  Weight: 86 kg

DRUGS (1)
  1. ENBREL [Suspect]
     Indication: PSORIATIC ARTHROPATHY
     Route: 030
     Dates: start: 20041101, end: 20041222

REACTIONS (3)
  - FACIAL PALSY [None]
  - HYPOAESTHESIA [None]
  - SPEECH DISORDER [None]
